FAERS Safety Report 8825302 (Version 1)
Quarter: 2012Q4

REPORT INFORMATION
  Report Type: 
  Country: IT (occurrence: FR)
  Receive Date: 20121004
  Receipt Date: 20121004
  Transmission Date: 20130627
  Serious: Yes (Hospitalization)
  Sender: FDA-Public Use
  Company Number: FR-FRI-1000039093

PATIENT
  Sex: Female

DRUGS (5)
  1. NEBIVOLOL [Suspect]
     Indication: HYPERTENSION
     Dosage: 5 mg
     Route: 048
     Dates: start: 201006
  2. OLMETEC [Suspect]
     Indication: HYPERTENSION
     Dosage: 40 mg
     Route: 048
     Dates: start: 201006
  3. LERCAN [Suspect]
     Indication: HYPERTENSION
     Dosage: 20 mg
     Route: 048
     Dates: start: 201006
  4. LYRICA [Concomitant]
  5. LAMALINE [Concomitant]

REACTIONS (2)
  - Muscle spasms [Unknown]
  - Myalgia [Unknown]
